FAERS Safety Report 5369220-6 (Version None)
Quarter: 2007Q2

REPORT INFORMATION
  Report Type: 
  Country: None (occurrence: None)
  Receive Date: 20070625
  Receipt Date: 20070306
  Transmission Date: 20071010
  Serious: No
  Sender: FDA-Public Use
  Company Number: US-ASTRAZENECA-2007UW04254

PATIENT
  Age: 67 Year
  Sex: Male

DRUGS (9)
  1. CRESTOR [Suspect]
     Route: 048
  2. GLUCOTROL [Concomitant]
  3. COREG [Concomitant]
  4. AVANDIA [Concomitant]
  5. VERALIM PM [Concomitant]
  6. BENICAR [Concomitant]
  7. LANTUS [Concomitant]
  8. ZETIA [Concomitant]
  9. AVANDAMET [Concomitant]

REACTIONS (1)
  - MEDICATION RESIDUE [None]
